FAERS Safety Report 6844316-8 (Version None)
Quarter: 2010Q3

REPORT INFORMATION
  Report Type: 
  Country: None (occurrence: None)
  Receive Date: 20100715
  Receipt Date: 20100712
  Transmission Date: 20110219
  Serious: Yes (Death, Hospitalization, Other)
  Sender: FDA-Public Use
  Company Number: BR-ROCHE-714953

PATIENT
  Sex: Female
  Weight: 74 kg

DRUGS (5)
  1. TOCILIZUMAB [Suspect]
     Indication: RHEUMATOID ARTHRITIS
     Dosage: INFUSION
     Route: 065
     Dates: start: 20081101, end: 20081101
  2. TOCILIZUMAB [Suspect]
     Route: 065
     Dates: start: 20081201, end: 20081201
  3. TOCILIZUMAB [Suspect]
     Route: 065
     Dates: start: 20090101, end: 20090101
  4. TOCILIZUMAB [Suspect]
     Route: 065
     Dates: start: 20090201, end: 20090201
  5. REMICADE [Concomitant]
     Dates: start: 20070101

REACTIONS (4)
  - DEATH [None]
  - FEMUR FRACTURE [None]
  - LUNG DISORDER [None]
  - PAIN [None]
